FAERS Safety Report 23070030 (Version 5)
Quarter: 2023Q4

REPORT INFORMATION
  Report Type: Spontaneous
  Country: US (occurrence: US)
  Receive Date: 20231016
  Receipt Date: 20231222
  Transmission Date: 20240110
  Serious: No
  Sender: FDA-Public Use
  Company Number: US-SA-SAC20231010000659

PATIENT
  Age: 68 Year
  Sex: Female

DRUGS (1)
  1. DUPIXENT [Suspect]
     Active Substance: DUPILUMAB
     Indication: Nasal polyps
     Dosage: 300 MG, QOW
     Route: 058

REACTIONS (13)
  - Injection site vesicles [Recovering/Resolving]
  - Bronchitis [Recovered/Resolved]
  - Abdominal discomfort [Unknown]
  - Abdominal distension [Unknown]
  - Flatulence [Unknown]
  - Dyspepsia [Unknown]
  - Weight increased [Unknown]
  - Injection site urticaria [Unknown]
  - Pruritus [Unknown]
  - Injection site swelling [Recovering/Resolving]
  - Product administration error [Unknown]
  - Injection site erythema [Recovered/Resolved]
  - Injection site pruritus [Unknown]

NARRATIVE: CASE EVENT DATE: 20231109
